FAERS Safety Report 25864790 (Version 1)
Quarter: 2025Q3

REPORT INFORMATION
  Report Type: Spontaneous
  Country: US (occurrence: None)
  Receive Date: 20250929
  Receipt Date: 20250929
  Transmission Date: 20251021
  Serious: Yes (Hospitalization)
  Sender: FDA-CTU
  Company Number: None

PATIENT
  Sex: Female

DRUGS (2)
  1. DEFERASIROX [Suspect]
     Active Substance: DEFERASIROX
     Indication: Sickle cell disease
     Dosage: 1080 MG DAILY ORAL
     Route: 048
     Dates: start: 20221004
  2. DEFERASIROX [Suspect]
     Active Substance: DEFERASIROX
     Indication: Mineral metabolism disorder

REACTIONS (1)
  - Cerebrovascular accident [None]
